FAERS Safety Report 6803951-3 (Version None)
Quarter: 2010Q2

REPORT INFORMATION
  Report Type: 
  Country: None (occurrence: None)
  Receive Date: 20100628
  Receipt Date: 20060221
  Transmission Date: 20101027
  Serious: No
  Sender: FDA-Public Use
  Company Number: US-PFIZER INC-2006005723

PATIENT
  Sex: Male
  Weight: 86.18 kg

DRUGS (6)
  1. XALATAN [Suspect]
     Indication: INTRAOCULAR PRESSURE INCREASED
     Route: 047
  2. XAL-EASE [Suspect]
  3. ACETYLSALICYLIC ACID [Concomitant]
     Route: 065
  4. MULTIPLE VITAMINS [Concomitant]
     Route: 065
  5. CALCIUM WITH VITAMIN D [Concomitant]
     Route: 065
  6. VITAMIN B COMPLEX CAP [Concomitant]
     Route: 065

REACTIONS (1)
  - DRUG ADMINISTRATION ERROR [None]
